FAERS Safety Report 10027998 (Version 1)
Quarter: 2014Q1

REPORT INFORMATION
  Report Type: Spontaneous
  Country: DE (occurrence: None)
  Receive Date: 20140319
  Receipt Date: 20140319
  Transmission Date: 20141002
  Serious: Yes (Hospitalization)
  Sender: FDA-Public Use
  Company Number: 1403-0506

PATIENT
  Age: 65 Year
  Sex: Female

DRUGS (1)
  1. EYLEA [Suspect]
     Indication: AGE-RELATED MACULAR DEGENERATION
     Dosage: 4 WEEKLY
     Dates: start: 20121109

REACTIONS (4)
  - Ankle fracture [None]
  - Decreased appetite [None]
  - Diarrhoea [None]
  - Fatigue [None]
